FAERS Safety Report 7824071-5 (Version None)
Quarter: 2011Q4

REPORT INFORMATION
  Report Type: 
  Country: None (occurrence: None)
  Receive Date: 20111019
  Receipt Date: 20111013
  Transmission Date: 20120403
  Serious: Yes (Death, Hospitalization)
  Sender: FDA-Public Use
  Company Number: PHHY2011JP07154

PATIENT
  Sex: Male
  Weight: 48.3 kg

DRUGS (13)
  1. DIART [Concomitant]
     Dosage: 60 MG, UNK
     Dates: start: 20050101, end: 20091121
  2. EXJADE [Suspect]
     Indication: APLASTIC ANAEMIA
     Dosage: 1000 MG DAILY
     Route: 048
     Dates: start: 20080822, end: 20080930
  3. URINORM [Concomitant]
     Dosage: 50 MG, UNK
     Dates: start: 20050101, end: 20091121
  4. GLAKAY [Concomitant]
     Dosage: 45 MG, UNK
     Route: 048
     Dates: start: 20050101, end: 20091121
  5. RABEPRAZOLE SODIUM [Concomitant]
     Dosage: 10 MG, UNK
     Dates: start: 20050101, end: 20091121
  6. HOKUNALIN [Concomitant]
     Dosage: 2 MG, UNK
     Route: 065
     Dates: start: 20090223, end: 20091121
  7. EXJADE [Suspect]
     Dosage: 500 MG DAILY
     Route: 048
     Dates: start: 20081001, end: 20081014
  8. EXJADE [Suspect]
     Dosage: 625 MG DAILY
     Route: 048
     Dates: start: 20081015, end: 20081112
  9. ALFAROL [Concomitant]
     Dosage: 0.25 MG, UNK
     Route: 048
     Dates: start: 20050101
  10. EXJADE [Suspect]
     Dosage: 125 MG DAILY
     Route: 048
     Dates: start: 20090612, end: 20090709
  11. NEUTROGIN [Concomitant]
     Dosage: 250 UG, UNK
     Route: 065
     Dates: start: 20090223, end: 20091121
  12. EXJADE [Suspect]
     Dosage: 250 MG DAILY
     Route: 048
     Dates: start: 20090710, end: 20091121
  13. ALFAROL [Concomitant]
     Dosage: 0.5 MG, UNK
     Route: 048
     Dates: end: 20091121

REACTIONS (7)
  - SEPSIS [None]
  - FAECES DISCOLOURED [None]
  - COLITIS ISCHAEMIC [None]
  - PLATELET COUNT DECREASED [None]
  - RENAL IMPAIRMENT [None]
  - ABDOMINAL PAIN UPPER [None]
  - SEPTIC SHOCK [None]
